FAERS Safety Report 15647056 (Version 1)
Quarter: 2018Q4

REPORT INFORMATION
  Report Type: Spontaneous
  Country: JP (occurrence: JP)
  Receive Date: 20181122
  Receipt Date: 20181122
  Transmission Date: 20190205
  Serious: Yes (Hospitalization, Other)
  Sender: FDA-Public Use
  Company Number: JP-STRIDES ARCOLAB LIMITED-2018SP009885

PATIENT
  Age: 38 Year
  Sex: Male

DRUGS (4)
  1. HYDROXYCHLOROQUINE SULFATE. [Concomitant]
     Active Substance: HYDROXYCHLOROQUINE SULFATE
     Indication: SYSTEMIC LUPUS ERYTHEMATOSUS
     Dosage: UNK
     Route: 065
  2. TACROLIMUS. [Suspect]
     Active Substance: TACROLIMUS
     Indication: SYSTEMIC LUPUS ERYTHEMATOSUS
     Dosage: UNK
     Route: 065
  3. PREDNISOLONE. [Suspect]
     Active Substance: PREDNISOLONE
     Indication: SYSTEMIC LUPUS ERYTHEMATOSUS
     Dosage: UNK
     Route: 065
  4. METHOTREXATE. [Suspect]
     Active Substance: METHOTREXATE
     Indication: SYSTEMIC LUPUS ERYTHEMATOSUS
     Dosage: UNK
     Route: 065

REACTIONS (15)
  - Basilar artery stenosis [Unknown]
  - IVth nerve paralysis [Recovered/Resolved]
  - Ophthalmoplegia [Recovered/Resolved]
  - Diplopia [Recovered/Resolved]
  - Ischaemic stroke [Recovered/Resolved]
  - Dysarthria [Recovered/Resolved]
  - Pyrexia [Recovered/Resolved]
  - Headache [Recovered/Resolved]
  - Nausea [Recovered/Resolved]
  - Hemiparesis [Recovered/Resolved]
  - Rash [Recovered/Resolved]
  - Meningitis viral [Recovered/Resolved]
  - Varicella zoster virus infection [Recovered/Resolved]
  - Viral vasculitis [Recovered/Resolved]
  - Off label use [Unknown]
